FAERS Safety Report 4297394-7 (Version None)
Quarter: 2004Q1

REPORT INFORMATION
  Report Type: 
  Country: None (occurrence: None)
  Receive Date: 20040212
  Receipt Date: 20020402
  Transmission Date: 20041129
  Serious: Yes (Hospitalization)
  Sender: FDA-Public Use
  Company Number: 2002USA00912

PATIENT
  Age: 58 Year
  Sex: Female
  Weight: 81.6475 kg

DRUGS (6)
  1. AMBIEN [Suspect]
     Indication: AGITATION
     Dosage: 10 MG HS - ORAL
     Route: 048
  2. AMBIEN [Suspect]
     Indication: INSOMNIA
     Dosage: 10 MG HS - ORAL
     Route: 048
  3. AMBIEN [Suspect]
     Indication: MAJOR DEPRESSION
     Dosage: 10 MG HS - ORAL
     Route: 048
  4. PAXIL [Suspect]
     Indication: DEPRESSION
     Dosage: 30 MG AND 20 MG TABLETS EVERY NIGHT - ORAL
     Route: 048
  5. ZESTRIL [Suspect]
     Dosage: 10 MG OD - ORAL
     Route: 048
  6. LIPITOR [Suspect]
     Dosage: 10 MG OD - ORAL
     Route: 048

REACTIONS (3)
  - AMNESIA [None]
  - DEPENDENCE [None]
  - LOSS OF CONSCIOUSNESS [None]
